FAERS Safety Report 9378947 (Version 1)
Quarter: 2013Q2

REPORT INFORMATION
  Report Type: Spontaneous
  Country: US (occurrence: None)
  Receive Date: 20130626
  Receipt Date: 20130626
  Transmission Date: 20140414
  Serious: Yes (Life-Threatening)
  Sender: FDA-Public Use
  Company Number: 001551973A

PATIENT
  Age: 50 Year
  Sex: Female

DRUGS (2)
  1. PROACTIV SOLUTION RENEWING CLEANSER [Suspect]
     Indication: ACNE
     Dosage: USED TWICE DERMAL
     Dates: start: 20130228, end: 201303
  2. PROACTIV REPAIRING TREATMENT [Suspect]
     Indication: ACNE
     Dosage: USED TWICE DERMAL
     Dates: start: 20130228, end: 201303

REACTIONS (3)
  - Urticaria [None]
  - Throat tightness [None]
  - Dyspnoea [None]
